FAERS Safety Report 4300515-0 (Version None)
Quarter: 2004Q1

REPORT INFORMATION
  Report Type: 
  Country: None (occurrence: None)
  Receive Date: 20040217
  Receipt Date: 20040205
  Transmission Date: 20041129
  Serious: Yes (Other)
  Sender: FDA-Public Use
  Company Number: 2004008025

PATIENT
  Sex: Male

DRUGS (2)
  1. EPANUTIN (PHENYTOIN SODIUM) [Suspect]
     Indication: EPILEPSY
     Dosage: 300 MG (DAILY), ORAL
     Route: 048
     Dates: start: 19690101, end: 20031201
  2. PHENOBARBITAL TAB [Concomitant]

REACTIONS (9)
  - ARTHRITIS [None]
  - BALANCE DISORDER [None]
  - CEREBELLAR ATAXIA [None]
  - DIZZINESS [None]
  - FALL [None]
  - MULTIPLE FRACTURES [None]
  - NERVE INJURY [None]
  - OSTEOARTHRITIS [None]
  - PARAESTHESIA [None]
